FAERS Safety Report 23423376 (Version 1)
Quarter: 2024Q1

REPORT INFORMATION
  Report Type: Spontaneous
  Country: US (occurrence: None)
  Receive Date: 20240119
  Receipt Date: 20240119
  Transmission Date: 20240409
  Serious: Yes (Death)
  Sender: FDA-Public Use
  Company Number: None

PATIENT
  Age: 37 Year
  Sex: Male

DRUGS (7)
  1. VALGANCICLOVIR [Suspect]
     Active Substance: VALGANCICLOVIR
     Dosage: FREQUENCY : TWICE A DAY;?
     Route: 048
  2. RIFABUTIN [Suspect]
     Active Substance: RIFABUTIN
     Dosage: FREQUENCY : 4 TIMES A DAY;?
     Route: 048
  3. AZITHROMYCIN ANHYDROUS [Concomitant]
     Active Substance: AZITHROMYCIN ANHYDROUS
  4. Ethambutol 400 mg [Concomitant]
  5. DARUNAVIR [Concomitant]
     Active Substance: DARUNAVIR
  6. TIVICAY [Concomitant]
     Active Substance: DOLUTEGRAVIR SODIUM
  7. RITONAVIR [Concomitant]
     Active Substance: RITONAVIR

REACTIONS (1)
  - Death [None]

NARRATIVE: CASE EVENT DATE: 20240109
